FAERS Safety Report 21779787 (Version 1)
Quarter: 2022Q4

REPORT INFORMATION
  Report Type: Spontaneous
  Country: US (occurrence: None)
  Receive Date: 20221226
  Receipt Date: 20221226
  Transmission Date: 20230112
  Serious: Yes (Death, Other)
  Sender: FDA-Public Use
  Company Number: 2022A416285

PATIENT
  Age: 49 Year
  Sex: Female
  Weight: 81.6 kg

DRUGS (1)
  1. TEZSPIRE [Suspect]
     Active Substance: TEZEPELUMAB-EKKO
     Route: 065
     Dates: start: 20220128, end: 20220707

REACTIONS (5)
  - Haemophagocytic lymphohistiocytosis [Fatal]
  - Respiratory failure [Fatal]
  - Lung infiltration [Fatal]
  - Sepsis [Fatal]
  - Pyoderma gangrenosum [Unknown]
